FAERS Safety Report 4694556-1 (Version None)
Quarter: 2005Q2

REPORT INFORMATION
  Report Type: 
  Country: None (occurrence: None)
  Receive Date: 20050620
  Receipt Date: 20050531
  Transmission Date: 20051028
  Serious: Yes (Other)
  Sender: FDA-Public Use
  Company Number: AU-MERCK-0506AUS00111

PATIENT
  Age: 52 Year
  Sex: Female

DRUGS (1)
  1. VIOXX [Suspect]
     Route: 048
     Dates: start: 19991001, end: 20040901

REACTIONS (1)
  - MYOCARDIAL INFARCTION [None]
